FAERS Safety Report 7716785-2 (Version None)
Quarter: 2011Q3

REPORT INFORMATION
  Report Type: 
  Country: None (occurrence: None)
  Receive Date: 20110829
  Receipt Date: 20110815
  Transmission Date: 20111222
  Serious: Yes (Other)
  Sender: FDA-Public Use
  Company Number: GB-CEPHALON-2011004511

PATIENT
  Sex: Female

DRUGS (11)
  1. ACYCLOVIR [Concomitant]
  2. DAPSONE [Concomitant]
  3. CETIRIZINE HCL [Concomitant]
  4. BENDAMUSTINE HCL [Suspect]
     Indication: LYMPHOMA
     Route: 042
     Dates: start: 20110802
  5. PREDNISOLONE [Concomitant]
  6. ALLOPURINOL [Concomitant]
  7. PROMETHAZINE [Concomitant]
  8. AMITRIPTYLINE HCL [Concomitant]
  9. THYROXIN [Concomitant]
  10. RITUXIMAB [Concomitant]
  11. RISEDRONIC ACID [Concomitant]

REACTIONS (6)
  - MEMORY IMPAIRMENT [None]
  - DEMENTIA [None]
  - SCREAMING [None]
  - IRRITABILITY [None]
  - EMOTIONAL DISTRESS [None]
  - COGNITIVE DISORDER [None]
